FAERS Safety Report 5481879-1 (Version None)
Quarter: 2007Q4

REPORT INFORMATION
  Report Type: 
  Country: None (occurrence: None)
  Receive Date: 20071005
  Receipt Date: 20070817
  Transmission Date: 20080405
  Serious: Yes (Hospitalization)
  Sender: FDA-Public Use
  Company Number: TPA2007A01748

PATIENT
  Age: 70 Year
  Sex: Male
  Weight: 72.5755 kg

DRUGS (5)
  1. ROZEREM [Suspect]
     Indication: MIDDLE INSOMNIA
     Dosage: 8 MG, HS, PER ORAL
     Route: 048
     Dates: start: 20070602, end: 20070609
  2. ROZEREM [Suspect]
     Indication: MIDDLE INSOMNIA
     Dosage: 8 MG, HS, PER ORAL
     Route: 048
     Dates: start: 20070803
  3. DIOVAN HCT [Concomitant]
  4. CADUET (ATORVASTATIN CALCIUM, AMLODIPINE BESILATE) [Concomitant]
  5. LORAZEPAM [Concomitant]

REACTIONS (1)
  - MYOCARDIAL INFARCTION [None]
